FAERS Safety Report 14812934 (Version 2)
Quarter: 2018Q2

REPORT INFORMATION
  Report Type: Report from Study
  Country: CO (occurrence: CO)
  Receive Date: 20180426
  Receipt Date: 20180524
  Transmission Date: 20180711
  Serious: Yes (Death)
  Sender: FDA-Public Use
  Company Number: CO-UCBSA-2018017742

PATIENT
  Age: 9 Year
  Sex: Female

DRUGS (1)
  1. LACOSAMIDE. [Suspect]
     Active Substance: LACOSAMIDE
     Indication: EPILEPSY
     Dosage: 100 MG, 2X/DAY (BID)
     Route: 048
     Dates: start: 20160722, end: 20170420

REACTIONS (2)
  - Respiratory arrest [Fatal]
  - Off label use [Unknown]

NARRATIVE: CASE EVENT DATE: 20160722
